FAERS Safety Report 9303701 (Version 2)
Quarter: 2013Q2

REPORT INFORMATION
  Report Type: Spontaneous
  Country: AR (occurrence: AR)
  Receive Date: 20130522
  Receipt Date: 20130524
  Transmission Date: 20140414
  Serious: Yes (Hospitalization, Disabling, Other)
  Sender: FDA-Public Use
  Company Number: AR-SHIRE-SPV1-2009-01659

PATIENT
  Age: 13 Year
  Sex: Male
  Weight: 35.5 kg

DRUGS (3)
  1. ELAPRASE [Suspect]
     Indication: MUCOPOLYSACCHARIDOSIS II
     Dosage: 0.5 MG/KG, 1X/WEEK
     Dates: start: 20070726
  2. DIPHENHYDRAMINE [Concomitant]
     Indication: PREMEDICATION
     Dosage: 5 MG/KG, 1X/WEEK
     Dates: start: 20070726
  3. PARACETAMOL [Concomitant]
     Indication: PREMEDICATION
     Dosage: UNK, UNKNOWN
     Route: 065

REACTIONS (2)
  - Myoclonic epilepsy [Recovered/Resolved]
  - Convulsion [Recovered/Resolved]
